FAERS Safety Report 6922775-X (Version None)
Quarter: 2010Q3

REPORT INFORMATION
  Report Type: 
  Country: None (occurrence: None)
  Receive Date: 20100813
  Receipt Date: 20100813
  Transmission Date: 20110219
  Serious: Yes (Death)
  Sender: FDA-Public Use
  Company Number: None

PATIENT
  Age: 85 Year
  Sex: Female

DRUGS (1)
  1. SODIUM POLYSTYRENE SULFONATE [Suspect]
     Indication: HYPERKALAEMIA
     Dosage: 45G ONCE PO
     Route: 048
     Dates: start: 20070226, end: 20070226

REACTIONS (3)
  - COLITIS [None]
  - GASTROINTESTINAL NECROSIS [None]
  - RECTAL HAEMORRHAGE [None]
